FAERS Safety Report 10793977 (Version 2)
Quarter: 2015Q2

REPORT INFORMATION
  Report Type: Spontaneous
  Country: PE (occurrence: PE)
  Receive Date: 20150213
  Receipt Date: 20150604
  Transmission Date: 20150821
  Serious: Yes (Death, Other)
  Sender: FDA-Public Use
  Company Number: PE-PFIZER INC-2015058343

PATIENT
  Age: 68 Year
  Sex: Female

DRUGS (2)
  1. XANAX [Suspect]
     Active Substance: ALPRAZOLAM
     Indication: HEART RATE INCREASED
  2. XANAX [Suspect]
     Active Substance: ALPRAZOLAM
     Indication: ANXIETY
     Dosage: 0.25 MG, 1 TABLET OR 2 TABLET, AT 10:00 AM, AS NEEDED
     Route: 048
     Dates: start: 2012

REACTIONS (3)
  - Neoplasm malignant [Unknown]
  - Death [Fatal]
  - Bedridden [Unknown]

NARRATIVE: CASE EVENT DATE: 201503
